FAERS Safety Report 4687708-8 (Version None)
Quarter: 2005Q2

REPORT INFORMATION
  Report Type: 
  Country: None (occurrence: None)
  Receive Date: 20050610
  Receipt Date: 20050607
  Transmission Date: 20051028
  Serious: Yes (Other)
  Sender: FDA-Public Use
  Company Number: 200515218GDDC

PATIENT
  Age: 65 Year
  Sex: Female

DRUGS (5)
  1. FRUSEMIDE [Suspect]
     Indication: PULMONARY CONGESTION
     Route: 042
     Dates: start: 19981205, end: 19981213
  2. AMIODARONE [Suspect]
     Indication: ARRHYTHMIA
     Route: 042
     Dates: start: 19981130, end: 19981213
  3. OGEN [Concomitant]
     Route: 048
  4. PRAVASTATIN [Concomitant]
     Route: 048
  5. CAPTOPRIL [Concomitant]
     Route: 048

REACTIONS (1)
  - PNEUMONIA [None]
